FAERS Safety Report 6527585-3 (Version None)
Quarter: 2010Q1

REPORT INFORMATION
  Report Type: 
  Country: None (occurrence: None)
  Receive Date: 20100105
  Receipt Date: 20091224
  Transmission Date: 20100710
  Serious: Yes (Other)
  Sender: FDA-Public Use
  Company Number: PHHY2009JP59325

PATIENT
  Age: 27 Year
  Sex: Female

DRUGS (2)
  1. TEGRETOL [Suspect]
     Indication: PERSONALITY DISORDER
     Dosage: 300 MG, DAILY
     Route: 048
     Dates: start: 20091207, end: 20091220
  2. MEILAX [Concomitant]
     Dosage: 2 MG, UNK
     Route: 048
     Dates: start: 20091215

REACTIONS (3)
  - LIVER DISORDER [None]
  - PYREXIA [None]
  - RASH [None]
